FAERS Safety Report 7681600-2 (Version None)
Quarter: 2011Q3

REPORT INFORMATION
  Report Type: 
  Country: None (occurrence: None)
  Receive Date: 20110812
  Receipt Date: 20110801
  Transmission Date: 20111222
  Serious: Yes (Other)
  Sender: FDA-Public Use
  Company Number: PHHY2011BR70671

PATIENT
  Sex: Male

DRUGS (4)
  1. EXFORGE [Suspect]
     Indication: HYPERTENSION
     Dosage: 1 DF (80/5 MG), DAILY
     Route: 048
  2. EXFORGE [Suspect]
  3. VYTORIN [Concomitant]
     Dosage: 1 DF (10/20 MG), DAILY
  4. METFORMIN HCL [Concomitant]

REACTIONS (6)
  - VENOUS OCCLUSION [None]
  - HYPERTENSION [None]
  - DIABETES MELLITUS [None]
  - ORGANISING PNEUMONIA [None]
  - CONFUSIONAL STATE [None]
  - ANGINA PECTORIS [None]
